FAERS Safety Report 8115034-3 (Version None)
Quarter: 2012Q1

REPORT INFORMATION
  Report Type: 
  Country: None (occurrence: None)
  Receive Date: 20120206
  Receipt Date: 20120126
  Transmission Date: 20120608
  Serious: Yes (Other)
  Sender: FDA-Public Use
  Company Number: US-BAYER-2012-010069

PATIENT
  Age: 13 Year
  Sex: Female
  Weight: 59 kg

DRUGS (2)
  1. MIDOL MENSTRUAL COMPLETE CAPLETS [Suspect]
     Dosage: 4 DF, ONCE, BOTTLE COUNT 40 + 10S
     Route: 048
     Dates: start: 20120126, end: 20120126
  2. ADDERALL 5 [Concomitant]

REACTIONS (1)
  - VISUAL IMPAIRMENT [None]
